FAERS Safety Report 9775200 (Version 4)
Quarter: 2014Q1

REPORT INFORMATION
  Report Type: Spontaneous
  Country: US (occurrence: US)
  Receive Date: 20131220
  Receipt Date: 20140212
  Transmission Date: 20141002
  Serious: No
  Sender: FDA-Public Use
  Company Number: US-PFIZER INC-2013350499

PATIENT
  Sex: Male

DRUGS (2)
  1. PRISTIQ [Suspect]
     Dosage: UNK
     Dates: start: 201311
  2. KLONOPIN [Concomitant]
     Dosage: UNK

REACTIONS (4)
  - Drug effect decreased [Unknown]
  - Dizziness [Unknown]
  - Anger [Unknown]
  - Irritability [Unknown]
